FAERS Safety Report 8219232-X (Version None)
Quarter: 2012Q1

REPORT INFORMATION
  Report Type: 
  Country: None (occurrence: None)
  Receive Date: 20120319
  Receipt Date: 20120308
  Transmission Date: 20120608
  Serious: Yes (Death, Hospitalization, Other)
  Sender: FDA-Public Use
  Company Number: ES-JNJFOC-20110802104

PATIENT
  Age: 77 Year
  Sex: Male

DRUGS (6)
  1. GLUCOCORTICOID [Concomitant]
  2. METHOTREXATE [Concomitant]
  3. FOLIC ACID [Concomitant]
  4. REMICADE [Suspect]
     Indication: SPONDYLOARTHROPATHY
     Route: 042
     Dates: start: 20050418, end: 20090201
  5. NSAIDS [Concomitant]
  6. ACETAMINOPHEN [Concomitant]

REACTIONS (3)
  - DIVERTICULAR PERFORATION [None]
  - SYSTEMIC LUPUS ERYTHEMATOSUS [None]
  - LUNG CANCER METASTATIC [None]
